FAERS Safety Report 4574632-4 (Version None)
Quarter: 2005Q1

REPORT INFORMATION
  Report Type: 
  Country: None (occurrence: None)
  Receive Date: 20050208
  Receipt Date: 20040623
  Transmission Date: 20050727
  Serious: No
  Sender: FDA-Public Use
  Company Number: US-GLAXOSMITHKLINE-A0515746A

PATIENT
  Age: 63 Year
  Sex: Male

DRUGS (2)
  1. PAXIL [Suspect]
     Dosage: 20MG PER DAY
     Route: 048
     Dates: start: 20030501
  2. NEXIUM [Concomitant]

REACTIONS (3)
  - INSOMNIA [None]
  - LIBIDO DECREASED [None]
  - TINNITUS [None]
